FAERS Safety Report 4362618-4 (Version None)
Quarter: 2004Q2

REPORT INFORMATION
  Report Type: 
  Country: None (occurrence: None)
  Receive Date: 20040520
  Receipt Date: 20040506
  Transmission Date: 20050107
  Serious: Yes (Hospitalization)
  Sender: FDA-Public Use
  Company Number: 206352

PATIENT
  Age: 17 Year
  Sex: Male
  Weight: 35.5 kg

DRUGS (18)
  1. NUTROPIN [Suspect]
     Indication: CYSTIC FIBROSIS
     Dosage: 2.7 MG, 6/WEEK, SUBCUTANEOUS
     Route: 058
     Dates: start: 20030314, end: 20040223
  2. ADEK (ZINC NOS, MULTIVITAMINS NOS, MINERALS NOS) [Concomitant]
  3. ALBUTEROL (ALBUTEROL, ALBUTEROL SULFATE) [Concomitant]
  4. CIPRO [Concomitant]
  5. PRILOSEC [Concomitant]
  6. TOBRAMYCIN [Concomitant]
  7. ULTRASE MT 20 (PANCRELIPASE) [Concomitant]
  8. PEDIASURE (ENTERAL ALIMENTATION) [Concomitant]
  9. PULMICORT INHALER (BUDESONIDE) [Concomitant]
  10. TOBI [Concomitant]
  11. SINGULAIR [Concomitant]
  12. MIRALAX [Concomitant]
  13. PREVACID [Concomitant]
  14. VANCOMYCIN [Concomitant]
  15. PRIMAXIN [Concomitant]
  16. BENADRYL (DIPHENHDYRAMINE) [Concomitant]
  17. PREDNISONE [Concomitant]
  18. IV FLUIDS (TYPE UNKNOWN) (INTRAVENOUS SOLUTION NOS) [Concomitant]

REACTIONS (5)
  - CONDITION AGGRAVATED [None]
  - CYSTIC FIBROSIS [None]
  - HYPERGLYCAEMIA [None]
  - INSULIN RESISTANCE [None]
  - POLYURIA [None]
